FAERS Safety Report 19322103 (Version 1)
Quarter: 2021Q2

REPORT INFORMATION
  Report Type: Spontaneous
  Country: US (occurrence: US)
  Receive Date: 20210528
  Receipt Date: 20210528
  Transmission Date: 20210717
  Serious: Yes (Other)
  Sender: FDA-Public Use
  Company Number: US-AMGEN-USASP2021081400

PATIENT
  Age: 37 Year
  Sex: Female

DRUGS (4)
  1. OTEZLA [Suspect]
     Active Substance: APREMILAST
     Indication: PSORIATIC ARTHROPATHY
     Dosage: 30 MILLIGRAM, BID
     Route: 048
     Dates: start: 20210304
  2. OTEZLA [Suspect]
     Active Substance: APREMILAST
     Indication: PSORIASIS
  3. MELOXICAM. [Concomitant]
     Active Substance: MELOXICAM
  4. COVID?19 VACCINE MRNA [Concomitant]
     Dosage: UNK
     Dates: start: 20210407, end: 20210505

REACTIONS (3)
  - Diarrhoea [Unknown]
  - Nausea [Unknown]
  - Psoriatic arthropathy [Unknown]

NARRATIVE: CASE EVENT DATE: 20210505
